FAERS Safety Report 16089399 (Version 1)
Quarter: 2019Q1

REPORT INFORMATION
  Report Type: Spontaneous
  Country: US (occurrence: US)
  Receive Date: 20190220
  Receipt Date: 20190220
  Transmission Date: 20190418
  Serious: No
  Sender: FDA-Public Use
  Company Number: None

PATIENT
  Age: 65 Year
  Sex: Male

DRUGS (1)
  1. MAVYRET [Suspect]
     Active Substance: GLECAPREVIR\PIBRENTASVIR
     Route: 048

REACTIONS (8)
  - Hepatic cirrhosis [None]
  - Oedema [None]
  - Diarrhoea [None]
  - Headache [None]
  - Nausea [None]
  - Testicular swelling [None]
  - Fatigue [None]
  - Fluid retention [None]

NARRATIVE: CASE EVENT DATE: 20190220
